FAERS Safety Report 9206329 (Version 4)
Quarter: 2014Q3

REPORT INFORMATION
  Report Type: Spontaneous
  Country: None (occurrence: None)
  Receive Date: 20130401
  Receipt Date: 20140709
  Transmission Date: 20150326
  Serious: Yes (Life-Threatening, Other)
  Sender: FDA-Public Use
  Company Number: 2013030097

PATIENT
  Age: 67 Year
  Sex: Female

DRUGS (2)
  1. ALLERGODIL SPRAY NASALE (BATCH 2B186C) (AZELASTINE HYDROCHLORIDE) [Suspect]
     Active Substance: AZELASTINE HYDROCHLORIDE
     Indication: RHINITIS ALLERGIC
     Dosage: 2 DOSAGE FORMS (1 DOSAGE FORMS, 2 IN 1 D), NASAL?
     Route: 045
     Dates: start: 20130123, end: 20130124
  2. BROMAZEPAM (BROMAZEPAM) [Concomitant]
     Dates: start: 20130123, end: 20130124

REACTIONS (7)
  - Dyspnoea [None]
  - Choking sensation [None]
  - Erythema [None]
  - Product quality issue [None]
  - Nasal discomfort [None]
  - Apnoea [None]
  - Burns first degree [None]

NARRATIVE: CASE EVENT DATE: 20130123
